FAERS Safety Report 18573848 (Version 2)
Quarter: 2020Q4

REPORT INFORMATION
  Report Type: Spontaneous
  Country: AT (occurrence: AT)
  Receive Date: 20201203
  Receipt Date: 20201221
  Transmission Date: 20210114
  Serious: Yes (Other)
  Sender: FDA-Public Use
  Company Number: NVSC2020AT317653

PATIENT
  Sex: Female

DRUGS (1)
  1. GILENYA [Suspect]
     Active Substance: FINGOLIMOD HYDROCHLORIDE
     Indication: PRODUCT USED FOR UNKNOWN INDICATION
     Dosage: 0.5 MG, QD
     Route: 065
     Dates: start: 20170617

REACTIONS (3)
  - Oophoritis [Recovered/Resolved]
  - Pharyngitis [Recovered/Resolved]
  - Salpingitis [Recovered/Resolved]

NARRATIVE: CASE EVENT DATE: 20201002
